FAERS Safety Report 23862425 (Version 1)
Quarter: 2024Q2

REPORT INFORMATION
  Report Type: Spontaneous
  Country: CA (occurrence: CA)
  Receive Date: 20240516
  Receipt Date: 20240516
  Transmission Date: 20240715
  Serious: Yes (Hospitalization)
  Sender: FDA-Public Use
  Company Number: CA-002147023-NVSC2024CA101398

PATIENT
  Age: 11 Year
  Sex: Female
  Weight: 65 kg

DRUGS (1)
  1. ILARIS [Suspect]
     Active Substance: CANAKINUMAB
     Indication: Product used for unknown indication
     Dosage: 150 MG, (EVERY 8 WEEKS), (SINGLE-USE VIAL)
     Route: 058

REACTIONS (2)
  - Escherichia test positive [Recovered/Resolved]
  - Urosepsis [Recovered/Resolved]
